FAERS Safety Report 10278345 (Version 4)
Quarter: 2020Q4

REPORT INFORMATION
  Report Type: Other
  Country: IT (occurrence: IT)
  Receive Date: 20140704
  Receipt Date: 20201225
  Transmission Date: 20210113
  Serious: Yes (Other)
  Sender: FDA-Public Use
  Company Number: IT-ROCHE-1146547

PATIENT

DRUGS (3)
  1. RIBAVIRIN. [Suspect]
     Active Substance: RIBAVIRIN
     Indication: HEPATITIS C
     Route: 065
  2. TELAPREVIR [Suspect]
     Active Substance: TELAPREVIR
     Indication: HEPATITIS C
     Route: 048
  3. PEGINTERFERON ALFA-2A. [Suspect]
     Active Substance: PEGINTERFERON ALFA-2A
     Indication: HEPATITIS C
     Route: 065

REACTIONS (22)
  - Anaemia [Unknown]
  - Infection [Unknown]
  - Anorectal disorder [Unknown]
  - Hepatic cancer [Unknown]
  - Pneumonia [Unknown]
  - Septic shock [Unknown]
  - Nausea [Unknown]
  - Renal failure [Unknown]
  - Abdominal pain [Unknown]
  - Hyperbilirubinaemia [Unknown]
  - Hepatorenal syndrome [Unknown]
  - Pruritus [Unknown]
  - Asthenia [Unknown]
  - Pyrexia [Unknown]
  - Thrombocytopenia [Unknown]
  - Vomiting [Unknown]
  - Hepatic failure [Unknown]
  - Sepsis [Unknown]
  - Oesophageal varices haemorrhage [Unknown]
  - Rash [Unknown]
  - Stevens-Johnson syndrome [Recovered/Resolved]
  - Erysipelas [Unknown]
